FAERS Safety Report 13492664 (Version 2)
Quarter: 2019Q3

REPORT INFORMATION
  Report Type: Other
  Country: FR (occurrence: FR)
  Receive Date: 20170427
  Receipt Date: 20190815
  Transmission Date: 20191004
  Serious: Yes (Hospitalization)
  Sender: FDA-Public Use
  Company Number: FR-SEATTLE GENETICS-2017SGN01069

PATIENT
  Age: 53 Year
  Sex: Male

DRUGS (2)
  1. BENDAMUSTINE ACCORD [Suspect]
     Active Substance: BENDAMUSTINE
     Indication: HODGKIN^S DISEASE
     Dosage: UNK
     Route: 041
     Dates: start: 20170410, end: 20170410
  2. ADCETRIS [Suspect]
     Active Substance: BRENTUXIMAB VEDOTIN
     Indication: HODGKIN^S DISEASE
     Dosage: UNK
     Route: 041
     Dates: start: 20170410, end: 20170410

REACTIONS (7)
  - Vomiting [Recovered/Resolved]
  - Chills [Recovered/Resolved]
  - General physical health deterioration [Recovered/Resolved]
  - Dehydration [Recovered/Resolved]
  - Tachycardia [Recovered/Resolved]
  - Rash erythematous [Recovered/Resolved]
  - Diarrhoea [Recovered/Resolved]

NARRATIVE: CASE EVENT DATE: 20170410
